FAERS Safety Report 5829730-1 (Version None)
Quarter: 2008Q3

REPORT INFORMATION
  Report Type: 
  Country: None (occurrence: None)
  Receive Date: 20080801
  Receipt Date: 20080729
  Transmission Date: 20090109
  Serious: Yes (Other)
  Sender: FDA-Public Use
  Company Number: SE-BRISTOL-MYERS SQUIBB COMPANY-14280242

PATIENT
  Age: 37 Year
  Sex: Male

DRUGS (1)
  1. ABILIFY [Suspect]
     Indication: SCHIZOPHRENIA

REACTIONS (1)
  - COLITIS ULCERATIVE [None]
